FAERS Safety Report 6299050-2 (Version None)
Quarter: 2009Q3

REPORT INFORMATION
  Report Type: 
  Country: None (occurrence: None)
  Receive Date: 20090806
  Receipt Date: 20090729
  Transmission Date: 20100115
  Serious: Yes (Other)
  Sender: FDA-Public Use
  Company Number: CA-ASTRAZENECA-2009UW18574

PATIENT
  Sex: Female

DRUGS (12)
  1. CRESTOR [Suspect]
     Indication: BLOOD CHOLESTEROL
     Route: 048
     Dates: start: 20090501, end: 20090601
  2. CRESTOR [Suspect]
     Route: 048
     Dates: start: 20090501, end: 20090601
  3. NEXIUM [Suspect]
     Route: 048
     Dates: end: 20090601
  4. ZOCOR [Concomitant]
     Indication: DYSLIPIDAEMIA
     Dates: end: 20090630
  5. PARIET [Concomitant]
     Indication: GASTROOESOPHAGEAL REFLUX DISEASE
     Dates: end: 20090601
  6. FLOVENT [Concomitant]
     Indication: ASTHMA
  7. VENTOLIN [Concomitant]
  8. COVERSYL [Concomitant]
     Indication: HYPERTENSION
  9. ACTONEL [Concomitant]
     Indication: OSTEOPOROSIS
  10. VITAMIN SUPPLEMENTATION [Concomitant]
  11. ALOE VERA DRINK [Concomitant]
  12. DEQUADIN [Concomitant]

REACTIONS (5)
  - ABDOMINAL PAIN UPPER [None]
  - CHOKING SENSATION [None]
  - DIARRHOEA [None]
  - DYSPEPSIA [None]
  - HEADACHE [None]
